FAERS Safety Report 10268535 (Version 1)
Quarter: 2014Q2

REPORT INFORMATION
  Report Type: Spontaneous
  Country: FR (occurrence: FR)
  Receive Date: 20140630
  Receipt Date: 20140630
  Transmission Date: 20141212
  Serious: Yes (Other)
  Sender: FDA-Public Use
  Company Number: FR-OTSUKA-US-2014-11588

PATIENT
  Sex: 0

DRUGS (2)
  1. BUSULFEX [Suspect]
     Indication: STEM CELL TRANSPLANT
     Dosage: 600 MG/M2, UNKNOWN
     Route: 065
  2. THIOTEPA [Suspect]
     Indication: STEM CELL TRANSPLANT
     Dosage: 900 MG/M2, UNKNOWN
     Route: 065

REACTIONS (4)
  - Neurological symptom [Unknown]
  - Nuclear magnetic resonance imaging brain abnormal [Unknown]
  - Radiation interaction [Unknown]
  - Drug administration error [Unknown]
